FAERS Safety Report 23640698 (Version 1)
Quarter: 2024Q1

REPORT INFORMATION
  Report Type: Spontaneous
  Country: FR (occurrence: FR)
  Receive Date: 20240318
  Receipt Date: 20240318
  Transmission Date: 20240409
  Serious: Yes (Other)
  Sender: FDA-Public Use
  Company Number: FR-AFSSAPS-AVNY2023000492

PATIENT
  Age: 28 Year
  Sex: Male
  Weight: 85.9 kg

DRUGS (3)
  1. DIAZEPAM [Suspect]
     Active Substance: DIAZEPAM
     Indication: Product used for unknown indication
     Dosage: 40 MILLIGRAM, ONCE A DAY (10 MG PAR PRISE 4*/J)
     Route: 048
  2. CYAMEMAZINE [Concomitant]
     Active Substance: CYAMEMAZINE
     Indication: Product used for unknown indication
     Dosage: 25 MG IN THE MORNING50 MG IN THE EVENING
     Route: 065
  3. VENLAFAXINE [Concomitant]
     Active Substance: VENLAFAXINE HYDROCHLORIDE
     Indication: Product used for unknown indication
     Dosage: 37.5 MILLIGRAM, ONCE A DAY (37.5 MG PAR JOUR)
     Route: 065

REACTIONS (5)
  - Drug use disorder [Recovering/Resolving]
  - Epilepsy [Recovered/Resolved]
  - Asthenia [Recovering/Resolving]
  - Cerebellar ataxia [Recovering/Resolving]
  - Withdrawal syndrome [Recovering/Resolving]

NARRATIVE: CASE EVENT DATE: 20220101
